FAERS Safety Report 4549580-6 (Version None)
Quarter: 2005Q1

REPORT INFORMATION
  Report Type: 
  Country: None (occurrence: None)
  Receive Date: 20050106
  Receipt Date: 20041228
  Transmission Date: 20050727
  Serious: Yes (Hospitalization)
  Sender: FDA-Public Use
  Company Number: 2004121369

PATIENT
  Age: 29 Year
  Sex: Female

DRUGS (5)
  1. NIFEDIPINE [Suspect]
     Indication: THREATENED LABOUR
     Dosage: 60 MG, ORAL
     Route: 048
     Dates: start: 20041105, end: 20041106
  2. ATOSIBAN (ATOSIBAN) [Concomitant]
  3. LEVOTHYROXINE SODIUM [Concomitant]
  4. FERROUS SULFATE TAB [Concomitant]
  5. BETAMETHASONE [Concomitant]

REACTIONS (6)
  - DRUG EXPOSURE DURING PREGNANCY [None]
  - DYSPNOEA [None]
  - EMOTIONAL DISTRESS [None]
  - HYPERHIDROSIS [None]
  - PALPITATIONS [None]
  - RESPIRATORY DISORDER [None]
